FAERS Safety Report 14884173 (Version 1)
Quarter: 2018Q2

REPORT INFORMATION
  Report Type: Report from Study
  Country: None (occurrence: DE)
  Receive Date: 20180511
  Receipt Date: 20180511
  Transmission Date: 20180711
  Serious: Yes (Hospitalization)
  Sender: FDA-Public Use
  Company Number: DE-ABBVIE-18P-062-2337518-00

PATIENT
  Age: 81 Year
  Sex: Male
  Weight: 85 kg

DRUGS (29)
  1. DECRISTOL [Concomitant]
     Indication: VITAMIN SUPPLEMENTATION
     Route: 048
     Dates: start: 2017
  2. VENETOCLAX. [Suspect]
     Active Substance: VENETOCLAX
     Indication: MYELODYSPLASTIC SYNDROME
     Route: 048
     Dates: start: 20180312, end: 20180405
  3. VENETOCLAX. [Suspect]
     Active Substance: VENETOCLAX
     Route: 048
     Dates: start: 20180508
  4. SODIUM BICARBONATE. [Concomitant]
     Active Substance: SODIUM BICARBONATE
     Indication: PROPHYLAXIS
     Route: 042
     Dates: start: 20180312, end: 20180313
  5. ORAL FLUIDS [Concomitant]
     Indication: PROPHYLAXIS
     Route: 048
     Dates: start: 20180315, end: 20180407
  6. VITALUX PLUS [Concomitant]
     Active Substance: VITAMINS
     Indication: VITAMIN SUPPLEMENTATION
     Route: 048
     Dates: start: 2008
  7. DIPIDOLOR [Concomitant]
     Active Substance: PIRITRAMIDE
     Indication: BACK PAIN
     Route: 041
     Dates: start: 20180326
  8. IBUPROFEN. [Concomitant]
     Active Substance: IBUPROFEN
     Indication: BACK PAIN
     Route: 048
     Dates: start: 20180406, end: 20180410
  9. PERFALGAN [Concomitant]
     Active Substance: ACETAMINOPHEN
     Indication: PYREXIA
     Route: 041
     Dates: start: 20180404
  10. PANTOPRAZOL [Concomitant]
     Active Substance: PANTOPRAZOLE SODIUM
     Indication: PROPHYLAXIS
     Route: 048
     Dates: start: 20180403
  11. MERONEM [Concomitant]
     Active Substance: MEROPENEM
     Indication: INTERVERTEBRAL DISCITIS
  12. NOVALGIN (CAFFEINE/PARACETAMOL/PROPYPHENAZONE) [Concomitant]
     Active Substance: ACETAMINOPHEN\CAFFEINE\PROPYPHENAZONE
     Indication: BACK PAIN
     Route: 041
     Dates: start: 20180327
  13. VOLTAREN OINTMENT [Concomitant]
     Indication: ARTHRITIS
     Route: 061
     Dates: start: 20180409
  14. PALLADON [Concomitant]
     Active Substance: HYDROMORPHONE
     Indication: BACK PAIN
     Route: 048
     Dates: start: 20180327, end: 20180425
  15. IBUPROFEN. [Concomitant]
     Active Substance: IBUPROFEN
     Indication: BACK PAIN
     Route: 048
     Dates: start: 20180318, end: 20180405
  16. RAMIPRIL. [Concomitant]
     Active Substance: RAMIPRIL
     Indication: HYPERTENSION
     Route: 048
     Dates: start: 20180415
  17. TRAMAL [Concomitant]
     Active Substance: TRAMADOL
     Indication: BACK PAIN
     Route: 048
     Dates: start: 20180326, end: 20180327
  18. GABAPENTIN. [Concomitant]
     Active Substance: GABAPENTIN
     Indication: BACK PAIN
     Route: 048
     Dates: start: 20180328
  19. MERONEM [Concomitant]
     Active Substance: MEROPENEM
     Indication: PYREXIA
     Route: 041
     Dates: start: 20180403, end: 20180409
  20. PALLADON AKUT [Concomitant]
     Indication: BACK PAIN
     Route: 048
     Dates: start: 20180328
  21. HEPARIN OINTMENT [Concomitant]
     Indication: THROMBOPHLEBITIS
     Route: 061
     Dates: start: 20180316, end: 20180323
  22. VENETOCLAX. [Suspect]
     Active Substance: VENETOCLAX
     Route: 048
     Dates: start: 20180503, end: 20180507
  23. ORAL FLUIDS [Concomitant]
     Route: 048
     Dates: start: 20180503
  24. VOLTAREN OINTMENT [Concomitant]
     Indication: ARTHRALGIA
     Route: 061
     Dates: start: 20180313, end: 20180315
  25. NOVAMINSULFON [Concomitant]
     Active Substance: METAMIZOLE
     Indication: BACK PAIN
     Route: 048
     Dates: start: 20180318, end: 20180326
  26. NORMAL SALINE SOLUTION (0.9% SODIUM CHLORIDE) [Concomitant]
     Indication: PROPHYLAXIS
     Route: 042
     Dates: start: 20180312, end: 20180314
  27. TEBONIN FORTE [Concomitant]
     Indication: THROMBOSIS PROPHYLAXIS
     Route: 048
     Dates: start: 1998
  28. TAZOBACTAM/PIPERACILLIN [Concomitant]
     Active Substance: PIPERACILLIN SODIUM\TAZOBACTAM SODIUM
     Indication: INTERVERTEBRAL DISCITIS
     Dosage: 4/0.5G
     Route: 041
     Dates: start: 20180327, end: 20180403
  29. LEVOFLOXACIN. [Concomitant]
     Active Substance: LEVOFLOXACIN
     Indication: ANTIBIOTIC PROPHYLAXIS
     Route: 048
     Dates: start: 20180321, end: 20180401

REACTIONS (1)
  - Chondrocalcinosis pyrophosphate [Recovered/Resolved]

NARRATIVE: CASE EVENT DATE: 20180426
